FAERS Safety Report 8443543 (Version 2)
Quarter: 2012Q4

REPORT INFORMATION
  Report Type: Spontaneous
  Country: AT (occurrence: None)
  Receive Date: 20120227
  Receipt Date: 20121015
  Transmission Date: 20130627
  Serious: Yes (Death)
  Sender: FDA-Public Use
  Company Number: DSA_55167_2012

PATIENT
  Age: 68 Year
  Sex: Female

DRUGS (10)
  1. WELLBUTRIN [Suspect]
     Indication: PRODUCT USED FOR UNKNOWN INDICATION
     Dosage: (DF)
     Dates: start: 20120202, end: 20120214
  2. CITALOPRAM HYDROBROMIDE [Concomitant]
  3. PANTOPRAZOLE [Concomitant]
  4. AMLODIPINE [Concomitant]
  5. METFORMIN HYDROCHLORIDE [Concomitant]
  6. LISINOPRIL [Concomitant]
  7. CARVEDILOL [Concomitant]
  8. DICLOFENAC [Concomitant]
  9. FLUVASTATIN SODIUM [Concomitant]
  10. GALANTAMINE HYDROBROMIDE [Concomitant]

REACTIONS (1)
  - Sudden death [None]
